FAERS Safety Report 5683168-9 (Version None)
Quarter: 2008Q1

REPORT INFORMATION
  Report Type: 
  Country: None (occurrence: None)
  Receive Date: 20080327
  Receipt Date: 20080317
  Transmission Date: 20080703
  Serious: Yes (Other)
  Sender: FDA-Public Use
  Company Number: US-AMGEN-US262958

PATIENT
  Sex: Female

DRUGS (13)
  1. ENBREL [Suspect]
     Indication: RHEUMATOID ARTHRITIS
     Route: 064
  2. ENBREL [Suspect]
     Indication: INFERTILITY
  3. METHOTREXATE [Concomitant]
     Route: 064
  4. PLAQUENIL [Concomitant]
     Route: 064
  5. ADVAIR DISKUS 100/50 [Concomitant]
     Route: 064
  6. LOVENOX [Concomitant]
     Route: 064
     Dates: start: 20080104
  7. FOLIC ACID [Concomitant]
     Route: 064
  8. PEPCID [Concomitant]
     Route: 064
  9. CLARITIN [Concomitant]
     Route: 064
  10. THYROID TAB [Concomitant]
     Route: 064
  11. FISH OIL [Concomitant]
     Route: 064
  12. CALCIUM [Concomitant]
     Route: 064
  13. ASCORBIC ACID [Concomitant]
     Route: 064

REACTIONS (3)
  - GASTROOESOPHAGEAL REFLUX DISEASE [None]
  - LUNG DISORDER [None]
  - RESPIRATORY SYNCYTIAL VIRUS INFECTION [None]
